FAERS Safety Report 19072811 (Version 1)
Quarter: 2021Q1

REPORT INFORMATION
  Report Type: Spontaneous
  Country: FR (occurrence: FR)
  Receive Date: 20210330
  Receipt Date: 20210330
  Transmission Date: 20210420
  Serious: Yes (Hospitalization, Other)
  Sender: FDA-Public Use
  Company Number: FR-SA-2021SA103909

PATIENT
  Age: 52 Year
  Sex: Male

DRUGS (1)
  1. MYOZYME [Suspect]
     Active Substance: ALGLUCOSIDASE ALFA
     Indication: GLYCOGEN STORAGE DISEASE TYPE II
     Dosage: UNK, QOW
     Route: 042

REACTIONS (3)
  - Pneumothorax [Unknown]
  - Emphysema [Unknown]
  - Hypoventilation [Unknown]

NARRATIVE: CASE EVENT DATE: 202101
